FAERS Safety Report 5792879-6 (Version None)
Quarter: 2008Q2

REPORT INFORMATION
  Report Type: 
  Country: None (occurrence: None)
  Receive Date: 20080627
  Receipt Date: 20080619
  Transmission Date: 20081010
  Serious: Yes (Hospitalization)
  Sender: FDA-Public Use
  Company Number: GB-BRISTOL-MYERS SQUIBB COMPANY-14241236

PATIENT
  Age: 6 Decade
  Sex: Female

DRUGS (4)
  1. CYCLOPHOSPHAMIDE [Suspect]
     Indication: BREAST CANCER
     Dates: start: 20070101
  2. EPIRUBICIN [Suspect]
     Indication: BREAST CANCER
     Dates: start: 20070101
  3. FLUOROURACIL [Concomitant]
     Dates: start: 20070101
  4. TAXOTERE [Concomitant]
     Dates: start: 20070101

REACTIONS (1)
  - PROGRESSIVE MULTIFOCAL LEUKOENCEPHALOPATHY [None]
